FAERS Safety Report 11797338 (Version 4)
Quarter: 2016Q1

REPORT INFORMATION
  Report Type: Spontaneous
  Country: US (occurrence: US)
  Receive Date: 20151203
  Receipt Date: 20160106
  Transmission Date: 20160525
  Serious: Yes (Life-Threatening, Other)
  Sender: FDA-Public Use
  Company Number: US-009507513-1512USA000261

PATIENT
  Age: 48 Year
  Sex: Female
  Weight: 46.8 kg

DRUGS (4)
  1. CARBOPLATIN. [Concomitant]
     Active Substance: CARBOPLATIN
     Indication: CHEMOTHERAPY
     Dosage: TOTAL DAILY DOSE 540 MG
     Route: 042
     Dates: start: 20151103
  2. PACLITAXEL. [Concomitant]
     Active Substance: PACLITAXEL
     Indication: CHEMOTHERAPY
     Dosage: TOAL DAILY DOSE 250 MG
     Route: 042
     Dates: start: 20151103
  3. BEVACIZUMAB [Concomitant]
     Active Substance: BEVACIZUMAB
     Indication: CHEMOTHERAPY
     Dosage: TOTAL DAILY DOSE 1000 (UNITS NOT REPORTED)
     Route: 042
     Dates: start: 20151103
  4. EMEND [Suspect]
     Active Substance: APREPITANT
     Indication: PROPHYLAXIS OF NAUSEA AND VOMITING
     Dosage: 150 MG/ ONE DOSE
     Route: 042
     Dates: start: 20150827, end: 20151125

REACTIONS (4)
  - Urticaria [Recovering/Resolving]
  - Throat tightness [Recovering/Resolving]
  - Flushing [Recovered/Resolved]
  - Dyspnoea [Recovered/Resolved]

NARRATIVE: CASE EVENT DATE: 20151125
